FAERS Safety Report 10951781 (Version 1)
Quarter: 2015Q1

REPORT INFORMATION
  Report Type: Spontaneous
  Country: JP (occurrence: JP)
  Receive Date: 20150325
  Receipt Date: 20150325
  Transmission Date: 20150721
  Serious: Yes (Hospitalization)
  Sender: FDA-Public Use
  Company Number: JP-009507513-1503JPN011274

PATIENT
  Age: 46 Year
  Sex: Female

DRUGS (3)
  1. DESOGESTREL AND ETHINYL ESTRADIOL [Suspect]
     Active Substance: DESOGESTREL\ETHINYL ESTRADIOL
     Dosage: DAILY DOSE UNKNOWN
     Route: 048
  2. TENORMIN [Concomitant]
     Active Substance: ATENOLOL
     Dosage: POR; SINGLE DOSE, DAILY DOSAGE UNKNOWN;DAILY DOSE UNKNOWN
     Route: 048
  3. COUGH, COLD, AND FLU THERAPIES (UNSPECIFIED) [Concomitant]
     Active Substance: UNSPECIFIED INGREDIENT
     Dosage: DAILY DOSE UNKNOWN; DAILY DOSAGE UNKNOWN;
     Route: 065

REACTIONS (2)
  - Calculus ureteric [Unknown]
  - Medication error [Unknown]
